FAERS Safety Report 17309175 (Version 1)
Quarter: 2020Q1

REPORT INFORMATION
  Report Type: Spontaneous
  Country: CA (occurrence: CA)
  Receive Date: 20200123
  Receipt Date: 20200123
  Transmission Date: 20200409
  Serious: No
  Sender: FDA-Public Use
  Company Number: CA-LUPIN PHARMACEUTICALS INC.-2019-07561

PATIENT
  Age: 51 Year
  Sex: Male

DRUGS (1)
  1. MORPHINE [Suspect]
     Active Substance: MORPHINE
     Indication: DRUG USE DISORDER
     Dosage: 240 MILLIGRAM, QD (SLOW-RELEASE ORAL MORPHINE)
     Route: 048

REACTIONS (1)
  - Myoclonus [Recovered/Resolved]
